FAERS Safety Report 9277304 (Version 1)
Quarter: 2013Q2

REPORT INFORMATION
  Report Type: Spontaneous
  Country: US (occurrence: None)
  Receive Date: 20130502
  Receipt Date: 20130502
  Transmission Date: 20140414
  Serious: Yes (Hospitalization, Other)
  Sender: FDA-Public Use
  Company Number: None

PATIENT
  Age: 61 Year
  Sex: Female
  Weight: 59.42 kg

DRUGS (1)
  1. EVISTA [Suspect]
     Indication: OSTEOPOROSIS
     Dosage: 1 TABLET  1/DAY  ORAL
     Route: 048

REACTIONS (6)
  - Asthenia [None]
  - Feeling abnormal [None]
  - Mass [None]
  - Sensory disturbance [None]
  - Pharyngeal disorder [None]
  - Tongue disorder [None]
